FAERS Safety Report 9660461 (Version 2)
Quarter: 2013Q4

REPORT INFORMATION
  Report Type: Spontaneous
  Country: AT (occurrence: AT)
  Receive Date: 20131031
  Receipt Date: 20131113
  Transmission Date: 20140711
  Serious: Yes (Life-Threatening, Hospitalization, Disabling, Other)
  Sender: FDA-Public Use
  Company Number: AT-MERCK-1310AUT014587

PATIENT
  Age: 68 Year
  Sex: Male
  Weight: 72 kg

DRUGS (5)
  1. PEGINTRON [Suspect]
     Indication: CHRONIC HEPATITIS C
     Dosage: ONCE A WEEK
     Route: 058
     Dates: start: 20131003, end: 20131014
  2. REBETOL [Suspect]
     Indication: HEPATITIS C
     Dosage: 2/0/3
     Route: 048
     Dates: start: 20131003, end: 20131012
  3. MARCOUMAR [Concomitant]
     Indication: ATRIAL FIBRILLATION
     Route: 048
  4. CARVEDILOL [Concomitant]
     Indication: HYPERTENSION
     Dosage: 1/0/1
     Route: 048
  5. VALSARTAN HCT SANDOZ [Concomitant]
     Indication: HYPERTENSION
     Dosage: 160/12.5 MG 1/0/0

REACTIONS (2)
  - Cerebral haemorrhage [Unknown]
  - Cerebrovascular accident [Unknown]
